FAERS Safety Report 18196737 (Version 2)
Quarter: 2020Q4

REPORT INFORMATION
  Report Type: Spontaneous
  Country: US (occurrence: US)
  Receive Date: 20200826
  Receipt Date: 20201117
  Transmission Date: 20210113
  Serious: Yes (Hospitalization, Other)
  Sender: FDA-Public Use
  Company Number: US-ALEXION-A202012228

PATIENT
  Age: 64 Year
  Sex: Female

DRUGS (2)
  1. IMMUNOGLOBULIN                     /00025201/ [Suspect]
     Active Substance: HUMAN IMMUNOGLOBULIN G
     Indication: MYASTHENIA GRAVIS
     Dosage: UNK
     Route: 042
  2. SOLIRIS [Suspect]
     Active Substance: ECULIZUMAB
     Indication: MYASTHENIA GRAVIS
     Dosage: UNK
     Route: 042

REACTIONS (5)
  - Back pain [Unknown]
  - Staphylococcus test positive [Unknown]
  - Soft tissue inflammation [Unknown]
  - Intervertebral disc disorder [Unknown]
  - Osteomyelitis [Unknown]
